FAERS Safety Report 13025237 (Version 1)
Quarter: 2016Q4

REPORT INFORMATION
  Report Type: Report from Study
  Country: US (occurrence: US)
  Receive Date: 20161214
  Receipt Date: 20161214
  Transmission Date: 20170207
  Serious: Yes (Other)
  Sender: FDA-Public Use
  Company Number: US-AMGEN-USASL2016173122

PATIENT
  Age: 73 Year
  Sex: Female
  Weight: 68.48 kg

DRUGS (7)
  1. DILAUDID [Suspect]
     Active Substance: HYDROMORPHONE HYDROCHLORIDE
     Indication: KNEE ARTHROPLASTY
     Route: 065
  2. VITAMIN D [Concomitant]
     Active Substance: CHOLECALCIFEROL
  3. PERCOCET [Suspect]
     Active Substance: ACETAMINOPHEN\OXYCODONE HYDROCHLORIDE
     Indication: KNEE ARTHROPLASTY
     Route: 065
  4. REPATHA [Suspect]
     Active Substance: EVOLOCUMAB
     Indication: BLOOD CHOLESTEROL INCREASED
     Dosage: 140 MG, Q2WK
     Route: 065
     Dates: start: 2015
  5. REPATHA [Suspect]
     Active Substance: EVOLOCUMAB
     Indication: DRUG INTOLERANCE
  6. TRAMADOL. [Suspect]
     Active Substance: TRAMADOL
     Indication: PAIN
     Dosage: 50 MG, Q6H
     Route: 065
  7. MORPHINE [Suspect]
     Active Substance: MORPHINE
     Indication: KNEE ARTHROPLASTY
     Route: 065

REACTIONS (9)
  - Knee arthroplasty [Unknown]
  - Hepatic enzyme increased [Unknown]
  - Somnolence [Unknown]
  - Dizziness [Unknown]
  - Weight decreased [Unknown]
  - Malaise [Unknown]
  - Fall [Unknown]
  - Procedural pain [Unknown]
  - Contusion [Unknown]

NARRATIVE: CASE EVENT DATE: 2016
